FAERS Safety Report 18626425 (Version 1)
Quarter: 2020Q4

REPORT INFORMATION
  Report Type: Report from Study
  Country: US (occurrence: US)
  Receive Date: 20201217
  Receipt Date: 20201217
  Transmission Date: 20210114
  Serious: Yes (Hospitalization, Other)
  Sender: FDA-Public Use
  Company Number: US-GILEAD-2020-0508872

PATIENT
  Age: 52 Year
  Sex: Male

DRUGS (14)
  1. AMLODIPINE [Concomitant]
     Active Substance: AMLODIPINE BESYLATE
  2. METOPROLOL TARTRATE. [Concomitant]
     Active Substance: METOPROLOL TARTRATE
  3. ACYCLOVIR [ACICLOVIR] [Concomitant]
     Active Substance: ACYCLOVIR
  4. MULTIVITAMIN + MINERAL [Concomitant]
     Active Substance: MINERALS\VITAMINS
  5. PROGRAF [Concomitant]
     Active Substance: TACROLIMUS
  6. MEPRON [METHYLPREDNISOLONE] [Concomitant]
     Active Substance: METHYLPREDNISOLONE
  7. MAGNESIUM [Concomitant]
     Active Substance: MAGNESIUM
  8. FOLIC ACID. [Concomitant]
     Active Substance: FOLIC ACID
  9. NOXAFIL [Concomitant]
     Active Substance: POSACONAZOLE
  10. PREDNISONE. [Concomitant]
     Active Substance: PREDNISONE
  11. AZTREONAM LYSINE [Suspect]
     Active Substance: AZTREONAM LYSINE
     Indication: CYSTIC FIBROSIS
     Dosage: 1 DOSAGE FORM, TID
     Route: 055
     Dates: start: 20170303
  12. OMEPRAZOLE. [Concomitant]
     Active Substance: OMEPRAZOLE
  13. TYLENOL [Concomitant]
     Active Substance: ACETAMINOPHEN
  14. WARFARIN [Concomitant]
     Active Substance: WARFARIN

REACTIONS (4)
  - Pneumonia [Not Recovered/Not Resolved]
  - Blister [Recovered/Resolved]
  - Lower respiratory tract infection fungal [Not Recovered/Not Resolved]
  - Intentional product use issue [Recovered/Resolved]

NARRATIVE: CASE EVENT DATE: 202008
